FAERS Safety Report 8554520-9 (Version None)
Quarter: 2012Q3

REPORT INFORMATION
  Report Type: 
  Country: None (occurrence: None)
  Receive Date: 20120726
  Receipt Date: 20120726
  Transmission Date: 20120928
  Serious: Yes (Other)
  Sender: FDA-Public Use
  Company Number: None

PATIENT
  Age: 38 Year
  Sex: Male
  Weight: 136.0791 kg

DRUGS (1)
  1. PROPECIA [Suspect]
     Indication: ANDROGENETIC ALOPECIA
     Dosage: 1 MG, EVERY OTHER DAY, PO
     Route: 048
     Dates: start: 20100701, end: 20120701

REACTIONS (4)
  - BLOOD TESTOSTERONE DECREASED [None]
  - EJACULATION DISORDER [None]
  - ERECTILE DYSFUNCTION [None]
  - LIBIDO DECREASED [None]
